FAERS Safety Report 5274278-9 (Version None)
Quarter: 2007Q1

REPORT INFORMATION
  Report Type: 
  Country: None (occurrence: None)
  Receive Date: 20070323
  Receipt Date: 20070309
  Transmission Date: 20070707
  Serious: Yes (Hospitalization)
  Sender: FDA-Public Use
  Company Number: EMADSS2002007586

PATIENT
  Sex: Male
  Weight: 65 kg

DRUGS (6)
  1. RISPERDAL CONSTA [Suspect]
     Indication: SCHIZOPHRENIA, PARANOID TYPE
     Route: 030
     Dates: start: 20020901
  2. RISPERDAL [Suspect]
     Indication: SCHIZOPHRENIA, PARANOID TYPE
     Route: 048
     Dates: start: 20020901
  3. TEGRETOL [Concomitant]
     Indication: SCHIZOPHRENIA, PARANOID TYPE
     Route: 048
     Dates: start: 20020801
  4. TRUXAL [Concomitant]
     Indication: SCHIZOPHRENIA, PARANOID TYPE
     Route: 048
     Dates: start: 20020801
  5. PENICILLIN [Concomitant]
     Route: 048
  6. DIAZEPAM [Concomitant]
     Route: 048

REACTIONS (3)
  - AKATHISIA [None]
  - DRUG LEVEL INCREASED [None]
  - SURGERY [None]
